FAERS Safety Report 5443762-7 (Version None)
Quarter: 2007Q3

REPORT INFORMATION
  Report Type: 
  Country: None (occurrence: None)
  Receive Date: 20070905
  Receipt Date: 20070824
  Transmission Date: 20080115
  Serious: Yes (Other)
  Sender: FDA-Public Use
  Company Number: US-PFIZER INC-2007046439

PATIENT
  Sex: Female
  Weight: 63.6 kg

DRUGS (1)
  1. CHANTIX [Suspect]
     Indication: SMOKING CESSATION THERAPY

REACTIONS (9)
  - ABNORMAL DREAMS [None]
  - ARTHRALGIA [None]
  - HEADACHE [None]
  - MENIERE'S DISEASE [None]
  - PAIN IN EXTREMITY [None]
  - SCIATICA [None]
  - SLEEP DISORDER [None]
  - THINKING ABNORMAL [None]
  - VISION BLURRED [None]
